FAERS Safety Report 6133529-9 (Version None)
Quarter: 2009Q1

REPORT INFORMATION
  Report Type: 
  Country: None (occurrence: None)
  Receive Date: 20090325
  Receipt Date: 20090325
  Transmission Date: 20090719
  Serious: Yes (Hospitalization)
  Sender: FDA-Public Use
  Company Number: None

PATIENT
  Age: 72 Year
  Sex: Female
  Weight: 56.9 kg

DRUGS (9)
  1. HEPARIN [Suspect]
     Dosage: 8200 UNITS ONCE IV
     Route: 042
     Dates: start: 20090309, end: 20090309
  2. MULTIVITIMIN [Concomitant]
  3. PLAVIX [Concomitant]
  4. PRAVACHOL [Concomitant]
  5. SYNTHROID [Concomitant]
  6. METOPROLOL [Concomitant]
  7. IMDUR [Concomitant]
  8. HYDROCHLOROTHIAZIDE [Concomitant]
  9. ASPIRIN [Concomitant]

REACTIONS (1)
  - ARTERIOVENOUS FISTULA SITE HAEMORRHAGE [None]
